FAERS Safety Report 24317733 (Version 2)
Quarter: 2024Q3

REPORT INFORMATION
  Report Type: Report from Study
  Country: US (occurrence: US)
  Receive Date: 20240913
  Receipt Date: 20240919
  Transmission Date: 20241017
  Serious: No
  Sender: PFIZER
  Company Number: US-PFIZER INC-PV202400120167

PATIENT
  Age: 73 Year
  Sex: Male

DRUGS (5)
  1. FLAGYL [Suspect]
     Active Substance: METRONIDAZOLE\METRONIDAZOLE HYDROCHLORIDE
     Dosage: 0.5 DF, 4X/DAY (500 MG 1/2 TABLET FOUR TIMES DAILY FOR 14 DAYS)
  2. TETRACYCLINE [Suspect]
     Active Substance: TETRACYCLINE
     Dosage: 500 MG, 4X/DAY
  3. OMEPRAZOLE [Suspect]
     Active Substance: OMEPRAZOLE
     Dosage: 20 MG, 1X/DAY
  4. PEPTO-BISMOL [Suspect]
     Active Substance: BISMUTH SUBSALICYLATE
     Dosage: UNK, 4X/DAY
  5. LENVIMA [Suspect]
     Active Substance: LENVATINIB
     Indication: Renal cell carcinoma
     Dosage: 20 MG, 1X/DAY
     Dates: start: 20240828

REACTIONS (3)
  - Faeces soft [Unknown]
  - Abdominal pain [Unknown]
  - Nausea [Unknown]

NARRATIVE: CASE EVENT DATE: 20240905
